FAERS Safety Report 26010970 (Version 1)
Quarter: 2025Q4

REPORT INFORMATION
  Report Type: Report from Study
  Country: US (occurrence: US)
  Receive Date: 20251107
  Receipt Date: 20251107
  Transmission Date: 20260117
  Serious: Yes (Hospitalization, Other)
  Sender: GILEAD
  Company Number: US-GILEAD-2025-0735547

PATIENT
  Sex: Male

DRUGS (3)
  1. AZTREONAM LYSINE [Suspect]
     Active Substance: AZTREONAM LYSINE
     Indication: Cystic fibrosis
     Dosage: INHALE 75 MG 3 TIMES DAILY 28 DAYS ON AND 28 DAYS OF
     Route: 055
  2. PULMOZYME [Concomitant]
     Active Substance: DORNASE ALFA
  3. TOBRAMYCIN SULFATE [Concomitant]
     Active Substance: TOBRAMYCIN SULFATE

REACTIONS (1)
  - Spinal operation [Unknown]
